FAERS Safety Report 10159350 (Version 2)
Quarter: 2014Q2

REPORT INFORMATION
  Report Type: Spontaneous
  Country: BR (occurrence: BR)
  Receive Date: 20140508
  Receipt Date: 20140604
  Transmission Date: 20141212
  Serious: Yes (Other)
  Sender: FDA-Public Use
  Company Number: BR-SA-2014SA056044

PATIENT
  Sex: Male
  Weight: 17 kg

DRUGS (2)
  1. LANTUS [Suspect]
     Indication: PRODUCT USED FOR UNKNOWN INDICATION
     Dosage: 10 IU DAILY ( USED TWICE DAILY)
     Route: 058
     Dates: start: 2012
  2. APIDRA [Suspect]
     Indication: PRODUCT USED FOR UNKNOWN INDICATION
     Dosage: DOSE: ACCORDING TO GLYCAEMIA (CONTROLLING THE PEAKS AT LUNCH AND DINNER)
     Route: 058
     Dates: start: 2012

REACTIONS (7)
  - Hypoglycaemic seizure [Not Recovered/Not Resolved]
  - Body temperature decreased [Not Recovered/Not Resolved]
  - Coma [Recovered/Resolved]
  - Aphagia [Unknown]
  - Tremor [Unknown]
  - Hyperglycaemia [Unknown]
  - Off label use [Unknown]
